FAERS Safety Report 8018876-8 (Version None)
Quarter: 2012Q1

REPORT INFORMATION
  Report Type: 
  Country: None (occurrence: None)
  Receive Date: 20120103
  Receipt Date: 20111219
  Transmission Date: 20120608
  Serious: Yes (Hospitalization)
  Sender: FDA-Public Use
  Company Number: US-PFIZER INC-2011314761

PATIENT
  Age: 10 Year
  Sex: Male

DRUGS (11)
  1. LITHIUM [Interacting]
     Indication: MANIA
     Dosage: 150 MG, 1X/DAY
     Route: 048
  2. MELATONIN [Interacting]
     Dosage: UNK
     Route: 048
  3. CLONIDINE [Interacting]
     Dosage: UNK
     Route: 048
  4. RISPERIDONE [Interacting]
     Dosage: UNK
     Route: 048
  5. RISPERIDONE [Interacting]
     Dosage: 4MG, DAILY
     Route: 048
  6. FAMOTIDINE [Suspect]
     Dosage: 20 MG, 2X/DAY
     Route: 048
  7. LITHIUM [Interacting]
     Dosage: 600 MG, 2X/DAY
     Route: 048
  8. LITHIUM [Interacting]
     Dosage: 900 MG, 2X/DAY
     Route: 048
  9. MELATONIN [Interacting]
     Dosage: 3 MG, AT BED TIME
     Route: 048
  10. LITHIUM [Interacting]
     Dosage: 600MG IN THE MORNING AND 900MG AT NIGHT
     Route: 048
  11. CLONIDINE [Interacting]
     Dosage: 0.1 MG, 3X/DAY
     Route: 048

REACTIONS (3)
  - DRUG INTERACTION [None]
  - CONDITION AGGRAVATED [None]
  - DYSPHEMIA [None]
